FAERS Safety Report 18195713 (Version 3)
Quarter: 2020Q4

REPORT INFORMATION
  Report Type: Report from Study
  Country: AR (occurrence: AR)
  Receive Date: 20200825
  Receipt Date: 20201202
  Transmission Date: 20210113
  Serious: Yes (Hospitalization)
  Sender: FDA-Public Use
  Company Number: NVSC2020AR231013

PATIENT
  Age: 50 Year
  Sex: Female

DRUGS (3)
  1. SANDOSTATIN LAR DEPOT [Suspect]
     Active Substance: OCTREOTIDE ACETATE
  2. SANDOSTATIN LAR DEPOT [Suspect]
     Active Substance: OCTREOTIDE ACETATE
     Indication: ACROMEGALY
     Dosage: 30 MG, EVERY 28 DAYS
     Route: 065
     Dates: start: 20180927
  3. SANDOSTATIN LAR DEPOT [Suspect]
     Active Substance: OCTREOTIDE ACETATE
     Dosage: 30 MG, QMO
     Route: 065

REACTIONS (5)
  - Brain abscess [Recovered/Resolved]
  - Ill-defined disorder [Unknown]
  - Blood glucose increased [Unknown]
  - Central nervous system infection [Recovered/Resolved]
  - Insulin-like growth factor increased [Unknown]

NARRATIVE: CASE EVENT DATE: 20200523
